FAERS Safety Report 22186977 (Version 3)
Quarter: 2023Q2

REPORT INFORMATION
  Report Type: Report from Study
  Country: US (occurrence: US)
  Receive Date: 20230407
  Receipt Date: 20230529
  Transmission Date: 20230722
  Serious: Yes (Other)
  Sender: FDA-Public Use
  Company Number: US-BAUSCH-BL-2023-005518

PATIENT
  Age: 38 Year
  Sex: Male

DRUGS (2)
  1. XIFAXAN [Suspect]
     Active Substance: RIFAXIMIN
     Indication: Hepatic encephalopathy
     Route: 048
  2. LACTULOSE [Suspect]
     Active Substance: LACTULOSE
     Indication: Product used for unknown indication
     Route: 065

REACTIONS (18)
  - Portal shunt procedure [Unknown]
  - Diarrhoea haemorrhagic [Unknown]
  - Constipation [Unknown]
  - Hallucinations, mixed [Not Recovered/Not Resolved]
  - Delusion [Unknown]
  - Pallor [Unknown]
  - Feeling abnormal [Unknown]
  - Tooth infection [Unknown]
  - Head discomfort [Unknown]
  - Fear [Unknown]
  - Nervousness [Unknown]
  - Asthenia [Unknown]
  - Diarrhoea [Not Recovered/Not Resolved]
  - Insomnia [Not Recovered/Not Resolved]
  - Pyrexia [Unknown]
  - Dizziness [Unknown]
  - Product dose omission in error [Unknown]
  - Product dose omission issue [Unknown]

NARRATIVE: CASE EVENT DATE: 20230101
